FAERS Safety Report 9507427 (Version 2)
Quarter: 2014Q1

REPORT INFORMATION
  Report Type: Spontaneous
  Country: US (occurrence: None)
  Receive Date: 20130305
  Receipt Date: 20140306
  Transmission Date: 20141002
  Serious: Yes (Hospitalization)
  Sender: FDA-Public Use
  Company Number: 163-21880-12111184

PATIENT
  Age: 71 Year
  Sex: Male

DRUGS (15)
  1. REVLIMID [Suspect]
     Indication: PLASMA CELL MYELOMA
     Route: 048
     Dates: start: 20100722
  2. NEURONTIN (GABAPENTIN) [Concomitant]
  3. BLEPH 10 (SULFACETAMIDE SODIUM) [Concomitant]
  4. CARFILZOMIB [Concomitant]
  5. ACYCLOVIR (ACICLOVIR) (ACICLOVIR) [Concomitant]
  6. ALLOPURINOL [Concomitant]
  7. DEXAMETHASONE [Concomitant]
  8. FUROSEMIDE [Concomitant]
  9. DRONABINOL [Concomitant]
  10. OXYCONTIN (OXYCODONE HYDROCHLORIDE) [Concomitant]
  11. RITALIN (METHYLPHENIDATE HYDROCHLORIDE) [Concomitant]
  12. COUMADIN (WARFARIN SODIUM) [Concomitant]
  13. DIGOXIN [Concomitant]
  14. TYLENOL (PARACETAMOL) [Concomitant]
  15. GABAPENTIN [Concomitant]

REACTIONS (5)
  - Pneumonia [None]
  - Atrial fibrillation [None]
  - Haemoglobin decreased [None]
  - Pancytopenia [None]
  - Streptococcal bacteraemia [None]
